FAERS Safety Report 6042507-X (Version None)
Quarter: 2009Q1

REPORT INFORMATION
  Report Type: 
  Country: None (occurrence: None)
  Receive Date: 20090116
  Receipt Date: 20080506
  Transmission Date: 20090719
  Serious: Yes (Hospitalization)
  Sender: FDA-Public Use
  Company Number: FR-ABBOTT-09P-056-0497975-00

PATIENT
  Sex: Female

DRUGS (3)
  1. PEDIAZOLE [Suspect]
     Indication: EAR INFECTION
     Route: 048
     Dates: start: 20080108, end: 20080117
  2. TOBREX [Suspect]
     Indication: CONJUNCTIVITIS
     Route: 047
     Dates: start: 20080108, end: 20080117
  3. ORELOX [Concomitant]
     Indication: EAR INFECTION
     Dates: start: 20071221, end: 20071231

REACTIONS (5)
  - ASTHENIA [None]
  - CHILLS [None]
  - CYANOSIS [None]
  - PYREXIA [None]
  - RASH MORBILLIFORM [None]
